FAERS Safety Report 13066898 (Version 1)
Quarter: 2016Q4

REPORT INFORMATION
  Report Type: Spontaneous
  Country: NL (occurrence: NL)
  Receive Date: 20161227
  Receipt Date: 20161227
  Transmission Date: 20170207
  Serious: Yes (Hospitalization)
  Sender: FDA-Public Use
  Company Number: NL-ALLERGAN-1682335US

PATIENT
  Age: 2 Month
  Weight: 1.23 kg

DRUGS (1)
  1. ESCITALOPRAM OXALATE - BP [Suspect]
     Active Substance: ESCITALOPRAM OXALATE
     Indication: MATERNAL EXPOSURE TIMING UNSPECIFIED
     Dosage: 5 MG
     Route: 064

REACTIONS (1)
  - Premature baby [Unknown]

NARRATIVE: CASE EVENT DATE: 20161027
